FAERS Safety Report 5171670-8 (Version None)
Quarter: 2006Q4

REPORT INFORMATION
  Report Type: 
  Country: None (occurrence: None)
  Receive Date: 20061213
  Receipt Date: 20061129
  Transmission Date: 20070319
  Serious: Yes (Death, Hospitalization)
  Sender: FDA-Public Use
  Company Number: US-ELI_LILLY_AND_COMPANY-US200611005498

PATIENT
  Age: 60 Year
  Sex: Male

DRUGS (1)
  1. FORTEO [Suspect]
     Indication: OSTEOPOROSIS
     Dates: start: 20050101, end: 20060101

REACTIONS (5)
  - BLOOD PARATHYROID HORMONE INCREASED [None]
  - INFECTION [None]
  - MULTI-ORGAN FAILURE [None]
  - RESPIRATORY FAILURE [None]
  - TRACHEOSTOMY INFECTION [None]
